FAERS Safety Report 7881584 (Version 3)
Quarter: 2013Q4

REPORT INFORMATION
  Report Type: Spontaneous
  Country: FR (occurrence: FR)
  Receive Date: 20110401
  Receipt Date: 20131017
  Transmission Date: 20140711
  Serious: Yes (Other)
  Sender: FDA-Public Use
  Company Number: FR-PFIZER INC-2011071797

PATIENT
  Age: 24 Month
  Sex: Female
  Weight: 14 kg

DRUGS (15)
  1. ATARAX [Suspect]
     Dosage: 14 MG, 2X/DAY
     Route: 048
     Dates: start: 20110304, end: 20110304
  2. ATARAX [Suspect]
     Dosage: 14 MG, 1X/DAY
     Route: 048
     Dates: start: 20110306, end: 20110307
  3. NALBUPHINE HYDROCHLORIDE [Suspect]
     Dosage: 4.2 MG, 3X/DAY
     Dates: start: 20110304, end: 20110304
  4. NALBUPHINE HYDROCHLORIDE [Suspect]
     Dosage: 4.2 MG, 1X/DAY
     Dates: start: 20110305, end: 20110305
  5. AUGMENTIN [Concomitant]
     Dosage: SINGLE INTAKE, UNK
     Dates: start: 20110303, end: 20110303
  6. ROCEPHINE [Concomitant]
     Dosage: 1 G, 1X/DAY
     Dates: start: 20110303
  7. DALACINE [Concomitant]
     Dosage: 150 MG, 3X/DAY
     Dates: start: 20110303
  8. FLAGYL [Concomitant]
     Dosage: 210 MG, 2X/DAY
     Dates: start: 20110303, end: 201103
  9. FLAGYL [Concomitant]
     Dosage: 150 MG, 2X/DAY
     Dates: start: 20110308
  10. BERINERT HS [Concomitant]
     Dosage: 500 IU, 2X/DAY
     Dates: start: 20110303, end: 20110303
  11. BERINERT HS [Concomitant]
     Dosage: 500 IU, 1X/DAY
     Dates: start: 20110305
  12. CODENFAN [Concomitant]
     Dosage: 7 MG, UNK
     Dates: start: 20110303
  13. CODENFAN [Concomitant]
     Dosage: 14 MG, 4X/DAY
     Dates: start: 201103
  14. EXACYL [Concomitant]
     Dosage: 180 MG, 3X/DAY
     Dates: start: 20110304
  15. PROPOFOL [Concomitant]
     Dosage: UNK

REACTIONS (3)
  - Confusional state [Recovered/Resolved]
  - Hallucination, visual [Recovered/Resolved]
  - Vitreous floaters [Recovered/Resolved]
